FAERS Safety Report 15288434 (Version 2)
Quarter: 2019Q2

REPORT INFORMATION
  Report Type: Spontaneous
  Country: FR (occurrence: FR)
  Receive Date: 20180817
  Receipt Date: 20190522
  Transmission Date: 20190711
  Serious: Yes (Hospitalization, Other)
  Sender: FDA-Public Use
  Company Number: FR-AUROBINDO-AUR-APL-2018-041739

PATIENT

DRUGS (3)
  1. FOLIC ACID. [Concomitant]
     Active Substance: FOLIC ACID
     Indication: PRODUCT USED FOR UNKNOWN INDICATION
     Dosage: 25 MILLIGRAM, EVERY WEEK
     Route: 065
  2. PREDNISONE. [Suspect]
     Active Substance: PREDNISONE
     Indication: SARCOIDOSIS
     Dosage: 5 MILLIGRAM, ONCE A DAY
     Route: 065
     Dates: start: 2011
  3. METHOTREXATE. [Suspect]
     Active Substance: METHOTREXATE
     Indication: SARCOIDOSIS
     Dosage: 25 MILLIGRAM, EVERY WEEK
     Route: 058
     Dates: start: 2011

REACTIONS (4)
  - Skin graft failure [Recovered/Resolved]
  - Steroid diabetes [Unknown]
  - Sarcoidosis [Recovered/Resolved]
  - Cellulitis [Recovered/Resolved]
